FAERS Safety Report 15930732 (Version 1)
Quarter: 2019Q1

REPORT INFORMATION
  Report Type: Spontaneous
  Country: DE (occurrence: DE)
  Receive Date: 20190207
  Receipt Date: 20190207
  Transmission Date: 20190417
  Serious: Yes (Hospitalization)
  Sender: FDA-Public Use
  Company Number: DE-ACCORD-105975

PATIENT
  Age: 87 Year
  Sex: Female

DRUGS (2)
  1. FUROSEMIDE. [Suspect]
     Active Substance: FUROSEMIDE
     Indication: PRODUCT USED FOR UNKNOWN INDICATION
     Dosage: 40 MG, 1-0-0-0
  2. POTASSIUM [Concomitant]
     Active Substance: POTASSIUM
     Dosage: NK MG, 2X / WEEK EACH 1/2 TBL, EFFERVESCENT TABLETS

REACTIONS (4)
  - Asthenia [Unknown]
  - Dehydration [Unknown]
  - Dyspnoea [Unknown]
  - General physical health deterioration [Unknown]
